FAERS Safety Report 23832346 (Version 2)
Quarter: 2024Q3

REPORT INFORMATION
  Report Type: Spontaneous
  Country: US (occurrence: US)
  Receive Date: 20240508
  Receipt Date: 20240702
  Transmission Date: 20241017
  Serious: Yes (Hospitalization)
  Sender: NEUROCRINE BIOSCIENCES
  Company Number: US-NEUROCRINE BIOSCIENCES INC.-2024NBI04310

PATIENT
  Sex: Male

DRUGS (2)
  1. INGREZZA [Suspect]
     Active Substance: VALBENAZINE
     Indication: Tardive dyskinesia
     Dosage: 40 MILLIGRAM
     Route: 065
     Dates: end: 20240422
  2. PROZAC [Concomitant]
     Active Substance: FLUOXETINE HYDROCHLORIDE

REACTIONS (12)
  - Mental status changes [Unknown]
  - Catatonia [Unknown]
  - Communication disorder [Unknown]
  - Speech disorder [Unknown]
  - Agitation [Unknown]
  - Gait disturbance [Unknown]
  - Cognitive disorder [Unknown]
  - Nervous system disorder [Unknown]
  - Dysphoria [Unknown]
  - Depression [Unknown]
  - Sedation [Unknown]
  - Somnolence [Unknown]

NARRATIVE: CASE EVENT DATE: 20240401
